FAERS Safety Report 4918979-8 (Version None)
Quarter: 2006Q1

REPORT INFORMATION
  Report Type: 
  Country: None (occurrence: None)
  Receive Date: 20060222
  Receipt Date: 20041229
  Transmission Date: 20060701
  Serious: Yes (Hospitalization, Disabling, Other)
  Sender: FDA-Public Use
  Company Number: US-MERCK-0412USA03300

PATIENT
  Age: 50 Year
  Sex: Female
  Weight: 55 kg

DRUGS (11)
  1. VIOXX [Suspect]
     Indication: ARTHRITIS
     Route: 048
     Dates: start: 20021009, end: 20021117
  2. VIOXX [Suspect]
     Route: 048
     Dates: end: 19991001
  3. VIOXX [Suspect]
     Route: 048
     Dates: start: 20020225
  4. VIOXX [Suspect]
     Indication: BACK PAIN
     Route: 048
     Dates: start: 20021009, end: 20021117
  5. VIOXX [Suspect]
     Route: 048
     Dates: end: 19991001
  6. VIOXX [Suspect]
     Route: 048
     Dates: start: 20020225
  7. LIPITOR [Concomitant]
     Route: 065
  8. PRILOSEC [Concomitant]
     Route: 048
  9. PLAVIX [Concomitant]
     Route: 065
  10. PREMARIN [Concomitant]
     Route: 065
  11. FOSAMAX [Concomitant]
     Route: 048

REACTIONS (24)
  - ACUTE MYOCARDIAL INFARCTION [None]
  - ANGINA PECTORIS [None]
  - BACK DISORDER [None]
  - BACK PAIN [None]
  - BRONCHITIS [None]
  - CARDIOVASCULAR DISORDER [None]
  - CHEST PAIN [None]
  - CORONARY ARTERY DISEASE [None]
  - COUGH [None]
  - DIARRHOEA [None]
  - HEADACHE [None]
  - INTERVERTEBRAL DISC DEGENERATION [None]
  - MITRAL VALVE PROLAPSE [None]
  - NAUSEA [None]
  - OEDEMA [None]
  - PAIN [None]
  - PALPITATIONS [None]
  - PELVIC PAIN [None]
  - RADICULOPATHY [None]
  - ROAD TRAFFIC ACCIDENT [None]
  - SPUTUM PURULENT [None]
  - UPPER RESPIRATORY TRACT INFECTION [None]
  - VAGINITIS GARDNERELLA [None]
  - VENTRICULAR EXTRASYSTOLES [None]
